FAERS Safety Report 6077036-0 (Version None)
Quarter: 2009Q1

REPORT INFORMATION
  Report Type: 
  Country: None (occurrence: None)
  Receive Date: 20090211
  Receipt Date: 20090211
  Transmission Date: 20090719
  Serious: Yes (Hospitalization)
  Sender: FDA-Public Use
  Company Number: None

PATIENT
  Age: 53 Year
  Sex: Male

DRUGS (11)
  1. ISOVUE-M 300 [Suspect]
     Indication: ARTHRALGIA
     Dosage: 15 ML X 1 INTRATHECA
     Route: 037
     Dates: start: 20081121
  2. ISOVUE-M 300 [Suspect]
     Indication: BACK PAIN
     Dosage: 15 ML X 1 INTRATHECA
     Route: 037
     Dates: start: 20081121
  3. PERCOCET [Concomitant]
  4. IBUPROFEN [Concomitant]
  5. FLEXERIL [Concomitant]
  6. CALM POWDER [Concomitant]
  7. PROTEIN DRINK [Concomitant]
  8. SELENIUM [Concomitant]
  9. GINGER [Concomitant]
  10. NATURAL VITAMINS/MINERAL [Concomitant]
  11. BEE GEL [Concomitant]

REACTIONS (8)
  - CONTRAST MEDIA REACTION [None]
  - FACIAL PALSY [None]
  - GRIP STRENGTH DECREASED [None]
  - HEAD DISCOMFORT [None]
  - MUSCLE TWITCHING [None]
  - NAUSEA [None]
  - RETCHING [None]
  - VISION BLURRED [None]
